FAERS Safety Report 4374757-2 (Version None)
Quarter: 2004Q2

REPORT INFORMATION
  Report Type: 
  Country: None (occurrence: None)
  Receive Date: 20040604
  Receipt Date: 20040526
  Transmission Date: 20050107
  Serious: Yes (Hospitalization)
  Sender: FDA-Public Use
  Company Number: JP-2004-026009

PATIENT
  Age: 17 Year
  Sex: Male

DRUGS (1)
  1. MAGNEVIST [Suspect]
     Indication: NUCLEAR MAGNETIC RESONANCE IMAGING
     Dosage: 10 ML, 1 DOSE, INTRAVENOUS
     Route: 042
     Dates: start: 20040524, end: 20040524

REACTIONS (4)
  - CONVULSION [None]
  - DYSPNOEA [None]
  - FEELING ABNORMAL [None]
  - GENERALISED OEDEMA [None]
